FAERS Safety Report 15457355 (Version 3)
Quarter: 2023Q4

REPORT INFORMATION
  Report Type: Report from Study
  Country: DE (occurrence: DK)
  Receive Date: 20181002
  Receipt Date: 20231123
  Transmission Date: 20240109
  Serious: Yes (Hospitalization)
  Sender: FDA-Public Use
  Company Number: DE-TAKEDA-2018MPI012076

PATIENT
  Sex: Female

DRUGS (6)
  1. BRENTUXIMAB VEDOTIN [Suspect]
     Active Substance: BRENTUXIMAB VEDOTIN
     Indication: Hodgkin^s disease
     Dosage: 1.8 MILLIGRAM/KILOGRAM
     Route: 065
     Dates: start: 20180918
  2. DOXORUBICIN [Suspect]
     Active Substance: DOXORUBICIN
     Indication: Hodgkin^s disease
     Dosage: 40 MILLIGRAM/SQ. METER
     Route: 065
     Dates: start: 20180919
  3. CYCLOPHOSPHAMIDE [Suspect]
     Active Substance: CYCLOPHOSPHAMIDE
     Indication: Hodgkin^s disease
     Dosage: 1250 MILLIGRAM/SQ. METER
     Route: 065
     Dates: start: 20180919
  4. DACARBAZINE [Suspect]
     Active Substance: DACARBAZINE
     Indication: Hodgkin^s disease
     Dosage: 250 MILLIGRAM/SQ. METER
     Route: 065
     Dates: start: 20180920
  5. DEXAMETHASONE [Suspect]
     Active Substance: DEXAMETHASONE
     Indication: Hodgkin^s disease
     Dosage: 40 MILLIGRAM
     Route: 065
     Dates: start: 20180919
  6. ETOPOSIDE [Suspect]
     Active Substance: ETOPOSIDE
     Indication: Hodgkin^s disease
     Dosage: 150 MILLIGRAM/SQ. METER
     Route: 065
     Dates: start: 20180919

REACTIONS (4)
  - Syncope [Recovered/Resolved]
  - Asthenia [Recovered/Resolved]
  - Febrile neutropenia [Recovered/Resolved]
  - Pyrexia [Recovered/Resolved]

NARRATIVE: CASE EVENT DATE: 20180925
